FAERS Safety Report 5033249-8 (Version None)
Quarter: 2006Q2

REPORT INFORMATION
  Report Type: 
  Country: None (occurrence: None)
  Receive Date: 20060620
  Receipt Date: 20060614
  Transmission Date: 20061013
  Serious: Yes (Disabling)
  Sender: FDA-Public Use
  Company Number: GBWYE611009MAY06

PATIENT
  Age: 30 Year
  Sex: Female

DRUGS (5)
  1. RAPAMUNE [Suspect]
     Dosage: 2 MG, ORAL; SEE IMAGE
     Route: 048
     Dates: start: 20051128, end: 20060513
  2. RAPAMUNE [Suspect]
     Dosage: 2 MG, ORAL; SEE IMAGE
     Route: 048
     Dates: start: 20060514
  3. MYCOPHENOLATE MOFETIL [Concomitant]
  4. LANSOPRAZOLE [Concomitant]
  5. DEPO-PROVERA SUSPENSION/INJ [Concomitant]

REACTIONS (5)
  - ACNE [None]
  - DRUG LEVEL INCREASED [None]
  - OSTEOPOROSIS [None]
  - POLYARTHRITIS [None]
  - RASH [None]
